FAERS Safety Report 5709925-8 (Version None)
Quarter: 2008Q2

REPORT INFORMATION
  Report Type: 
  Country: None (occurrence: None)
  Receive Date: 20080418
  Receipt Date: 20070411
  Transmission Date: 20081010
  Serious: No
  Sender: FDA-Public Use
  Company Number: US-ASTRAZENECA-2007UW07120

PATIENT
  Age: 52 Year
  Sex: Female

DRUGS (2)
  1. TOPROL-XL [Suspect]
     Route: 048
  2. DIOVAN [Concomitant]

REACTIONS (1)
  - ALPHA 1 FOETOPROTEIN INCREASED [None]
